FAERS Safety Report 10011916 (Version 6)
Quarter: 2015Q2

REPORT INFORMATION
  Report Type: Spontaneous
  Country: US (occurrence: US)
  Receive Date: 20140314
  Receipt Date: 20150608
  Transmission Date: 20150821
  Serious: Yes (Hospitalization, Disabling, Other)
  Sender: FDA-Public Use
  Company Number: US-SANOFI-AVENTIS-2012SA003383

PATIENT
  Age: 62 Year
  Sex: Male

DRUGS (2)
  1. PLAVIX [Suspect]
     Active Substance: CLOPIDOGREL BISULFATE
     Indication: STENT PLACEMENT
     Route: 065
     Dates: start: 20050627, end: 20090222
  2. ASPIRIN. [Concomitant]
     Active Substance: ASPIRIN

REACTIONS (14)
  - Multiple injuries [Not Recovered/Not Resolved]
  - Physical disability [Not Recovered/Not Resolved]
  - Pain [Not Recovered/Not Resolved]
  - Gastrointestinal haemorrhage [Unknown]
  - Economic problem [Not Recovered/Not Resolved]
  - Social problem [Not Recovered/Not Resolved]
  - Multi-organ failure [Unknown]
  - Loss of employment [Not Recovered/Not Resolved]
  - Renal injury [Unknown]
  - Tension [Not Recovered/Not Resolved]
  - Ulcer [Not Recovered/Not Resolved]
  - Deformity [Not Recovered/Not Resolved]
  - Anhedonia [Not Recovered/Not Resolved]
  - Psychological trauma [Not Recovered/Not Resolved]

NARRATIVE: CASE EVENT DATE: 20090221
